FAERS Safety Report 20895286 (Version 2)
Quarter: 2022Q3

REPORT INFORMATION
  Report Type: Spontaneous
  Country: US (occurrence: None)
  Receive Date: 20220531
  Receipt Date: 20220705
  Transmission Date: 20221027
  Serious: No
  Sender: FDA-Public Use
  Company Number: 2022A195920

PATIENT
  Age: 74 Year
  Sex: Female
  Weight: 54.9 kg

DRUGS (1)
  1. SYMBICORT [Suspect]
     Active Substance: BUDESONIDE\FORMOTEROL FUMARATE DIHYDRATE
     Indication: Asthma
     Dosage: 160MCG/4.5MCG
     Route: 055

REACTIONS (4)
  - Weight decreased [Unknown]
  - Oral candidiasis [Unknown]
  - Product dose omission issue [Unknown]
  - Device malfunction [Unknown]
